FAERS Safety Report 21758666 (Version 1)
Quarter: 2022Q4

REPORT INFORMATION
  Report Type: Spontaneous
  Country: FR (occurrence: FR)
  Receive Date: 20221221
  Receipt Date: 20221221
  Transmission Date: 20230113
  Serious: Yes (Hospitalization)
  Sender: FDA-Public Use
  Company Number: None

PATIENT
  Age: 73 Year
  Sex: Female
  Weight: 72 kg

DRUGS (5)
  1. GABAPENTIN [Suspect]
     Active Substance: GABAPENTIN
     Indication: Neuralgia
     Dosage: 300 MG ONCE A DAY D1 THEN 2/D D2 THEN 3/D D3
     Dates: start: 20220519, end: 20220523
  2. METFORMIN HYDROCHLORIDE [Concomitant]
     Active Substance: METFORMIN HYDROCHLORIDE
     Indication: Type 2 diabetes mellitus
     Dosage: 1 DOSAGE FORMS DAILY; 1 TAB MORNING;; METFORMINE ALMUS 850 MG
     Dates: start: 20220519, end: 20220523
  3. ACLASTA [Concomitant]
     Active Substance: ZOLEDRONIC ACID
     Indication: Hypercalcaemia
     Dosage: 1 INJECTION; ACLASTA 5 MG, SOLUTION FOR INFUSION; UNIT DOSE: 1DF
     Dates: start: 20220521, end: 20220521
  4. MORPHINE SULFATE [Concomitant]
     Active Substance: MORPHINE SULFATE
     Indication: Sciatica
     Dosage: 4 DOSAGE FORMS DAILY; 2 CP MORNING AND EVENING; MOSCONTIN 10 MG, PROLONGED-RELEASE COATED TABLET
     Dates: start: 20220518, end: 20220522
  5. MORPHINE SULFATE [Concomitant]
     Active Substance: MORPHINE SULFATE
     Indication: Sciatica
     Dosage: 1 TABLET ON 17.05 IN THE EVENING THEN 2 TABS/6H; ACTISKENAN 5 MG,
     Dates: start: 20220517, end: 20220522

REACTIONS (1)
  - Metabolic acidosis [Recovering/Resolving]

NARRATIVE: CASE EVENT DATE: 20220521
